FAERS Safety Report 4753212-1 (Version None)
Quarter: 2005Q3

REPORT INFORMATION
  Report Type: 
  Country: None (occurrence: None)
  Receive Date: 20050824
  Receipt Date: 20050815
  Transmission Date: 20060218
  Serious: Yes (Other)
  Sender: FDA-Public Use
  Company Number: 2005107711

PATIENT
  Age: 49 Year
  Sex: Female
  Weight: 83.9154 kg

DRUGS (6)
  1. CALAN [Suspect]
     Indication: BLOOD PRESSURE
     Dosage: 480 MG (240 MG, TWICE DAILY)
  2. CALAN [Suspect]
     Indication: MIGRAINE
     Dosage: 480 MG (240 MG, TWICE DAILY)
  3. SYNTHROID [Concomitant]
  4. PREVACID [Concomitant]
  5. VALIUM [Concomitant]
  6. DICLOXACILLIN [Concomitant]

REACTIONS (18)
  - ACCIDENTAL OVERDOSE [None]
  - ARTHRALGIA [None]
  - BACK PAIN [None]
  - BLOOD PRESSURE DECREASED [None]
  - BLOOD PRESSURE FLUCTUATION [None]
  - EMOTIONAL DISTRESS [None]
  - FEELING ABNORMAL [None]
  - FEELING DRUNK [None]
  - HEADACHE [None]
  - HEART RATE DECREASED [None]
  - MEMORY IMPAIRMENT [None]
  - NAUSEA [None]
  - NECK PAIN [None]
  - PALPITATIONS [None]
  - SENSORY DISTURBANCE [None]
  - TINNITUS [None]
  - VISUAL DISTURBANCE [None]
  - VOMITING [None]
